FAERS Safety Report 5114677-9 (Version None)
Quarter: 2006Q3

REPORT INFORMATION
  Report Type: 
  Country: None (occurrence: None)
  Receive Date: 20060926
  Receipt Date: 20060914
  Transmission Date: 20061208
  Serious: Yes (Death, Hospitalization, Other)
  Sender: FDA-Public Use
  Company Number: US-JNJFOC-20040205899

PATIENT
  Sex: Female

DRUGS (14)
  1. REMICADE [Suspect]
     Indication: RHEUMATOID ARTHRITIS
     Route: 042
  2. AGGRENOX [Concomitant]
  3. NORVASC [Concomitant]
  4. FEMEX [Concomitant]
  5. DARVOCET [Concomitant]
     Dosage: 200-300 MG DAILY
  6. NEXIUM [Concomitant]
  7. PREDNISONE TAB [Concomitant]
  8. TOPROL-XL [Concomitant]
  9. PROCRIT [Concomitant]
  10. MIACALCIN [Concomitant]
  11. ASPIRIN [Concomitant]
  12. GLYBURIDE [Concomitant]
  13. ASCORBIC ACID [Concomitant]
  14. VITAMIN E [Concomitant]

REACTIONS (3)
  - CEREBROVASCULAR ACCIDENT [None]
  - PNEUMONITIS [None]
  - RESPIRATORY FAILURE [None]
